FAERS Safety Report 6678155-8 (Version None)
Quarter: 2010Q2

REPORT INFORMATION
  Report Type: 
  Country: None (occurrence: None)
  Receive Date: 20100409
  Receipt Date: 20100409
  Transmission Date: 20101027
  Serious: Yes (Disabling, Other)
  Sender: FDA-Public Use
  Company Number: None

PATIENT
  Sex: Female
  Weight: 52.1637 kg

DRUGS (3)
  1. AVELOX [Suspect]
     Dosage: 400 MG.  1/DAY ORAL
     Route: 048
     Dates: start: 20100129
  2. AVELOX [Suspect]
     Dosage: 400 MG.  1/DAY ORAL
     Route: 048
     Dates: start: 20100130
  3. AVELOX [Suspect]
     Dosage: 400 MG.  1/DAY ORAL
     Route: 048
     Dates: start: 20100131

REACTIONS (6)
  - BALANCE DISORDER [None]
  - ERYTHEMA [None]
  - FORMICATION [None]
  - INSOMNIA [None]
  - OEDEMA PERIPHERAL [None]
  - STOMATITIS [None]
